FAERS Safety Report 5478136-6 (Version None)
Quarter: 2007Q4

REPORT INFORMATION
  Report Type: 
  Country: None (occurrence: None)
  Receive Date: 20071005
  Receipt Date: 20061128
  Transmission Date: 20080405
  Serious: No
  Sender: FDA-Public Use
  Company Number: US-BRISTOL-MYERS SQUIBB COMPANY-13596408

PATIENT

DRUGS (1)
  1. AVAPRO [Suspect]
     Indication: CARDIOVASCULAR DISORDER
     Dosage: PATIENT TOO 6OOMG INSTEAD OF 300MG AS ORDERED.

REACTIONS (1)
  - MEDICATION ERROR [None]
